FAERS Safety Report 8396721-9 (Version None)
Quarter: 2012Q2

REPORT INFORMATION
  Report Type: 
  Country: None (occurrence: None)
  Receive Date: 20120530
  Receipt Date: 20120524
  Transmission Date: 20120825
  Serious: Yes (Other)
  Sender: FDA-Public Use
  Company Number: US-PFIZER INC-2012055228

PATIENT
  Sex: Female
  Weight: 77.098 kg

DRUGS (16)
  1. TYLENOL [Suspect]
     Indication: PAIN
     Dosage: UNK
  2. ISOSORBIDE [Concomitant]
     Indication: CARDIAC DISORDER
     Dosage: UNK
  3. DIOVAN [Concomitant]
     Indication: HYPERTENSION
     Dosage: UNK
  4. BYSTOLIC [Concomitant]
     Dosage: UNK
  5. CRESTOR [Concomitant]
     Dosage: UNK
  6. PLAVIX [Concomitant]
     Dosage: UNK
  7. GABAPENTIN [Suspect]
     Indication: PAIN
     Dosage: UNK
  8. ALBUTEROL [Concomitant]
     Dosage: UNK
  9. OMEPRAZOLE [Concomitant]
     Dosage: UNK
  10. CALCITRIOL [Concomitant]
     Dosage: UNK
  11. TRAMADOL [Concomitant]
     Dosage: UNK
  12. OS-CAL D [Concomitant]
     Dosage: UNK
  13. LYRICA [Suspect]
     Dosage: 300 MG, DAILY
  14. VITAMIN B COMPLEX CAP [Concomitant]
     Dosage: UNK
  15. LYRICA [Suspect]
     Indication: NEUROPATHY PERIPHERAL
     Dosage: 50 MG, 2X/DAY
  16. LYRICA [Suspect]
     Dosage: 75 MG, 4X/DAY

REACTIONS (13)
  - RETINAL DISORDER [None]
  - EYE DISORDER [None]
  - MYOCARDIAL INFARCTION [None]
  - BLINDNESS UNILATERAL [None]
  - GLAUCOMA [None]
  - VISUAL FIELD DEFECT [None]
  - NEUROPATHY PERIPHERAL [None]
  - BREAKTHROUGH PAIN [None]
  - JOINT INSTABILITY [None]
  - VISUAL IMPAIRMENT [None]
  - OPTIC ISCHAEMIC NEUROPATHY [None]
  - VASCULITIS [None]
  - MUSCLE TWITCHING [None]
